FAERS Safety Report 6148539-5 (Version None)
Quarter: 2009Q2

REPORT INFORMATION
  Report Type: 
  Country: None (occurrence: None)
  Receive Date: 20090408
  Receipt Date: 20090325
  Transmission Date: 20091009
  Serious: Yes (Life-Threatening)
  Sender: FDA-Public Use
  Company Number: FR-GENENTECH-280422

PATIENT
  Sex: Male

DRUGS (2)
  1. MABTHERA [Suspect]
     Indication: LYMPHOMA
     Dosage: 600 MG, UNK
     Route: 042
     Dates: start: 20061121, end: 20070423
  2. MABTHERA [Suspect]
     Dosage: 700 MG, UNK
     Route: 042
     Dates: start: 20070927, end: 20080901

REACTIONS (5)
  - BRONCHOPNEUMONIA [None]
  - BRONCHOPULMONARY ASPERGILLOSIS [None]
  - HERPES VIRUS INFECTION [None]
  - HYPOGAMMAGLOBULINAEMIA [None]
  - PNEUMOCYSTIS JIROVECI PNEUMONIA [None]
